FAERS Safety Report 8713043 (Version 2)
Quarter: 2012Q4

REPORT INFORMATION
  Report Type: Report from Study
  Country: CA (occurrence: CA)
  Receive Date: 20120808
  Receipt Date: 20121008
  Transmission Date: 20130627
  Serious: Yes (Other)
  Sender: FDA-Public Use
  Company Number: CA-JNJFOC-20120715365

PATIENT
  Sex: Female
  Weight: 68 kg

DRUGS (7)
  1. REMICADE [Suspect]
     Indication: CROHN^S DISEASE
     Route: 042
     Dates: start: 20120924
  2. REMICADE [Suspect]
     Indication: CROHN^S DISEASE
     Route: 042
     Dates: start: 20120730
  3. REMICADE [Suspect]
     Indication: CROHN^S DISEASE
     Route: 042
     Dates: start: 2008
  4. TYLENOL [Concomitant]
     Indication: PREMEDICATION
     Route: 048
  5. SOLUCORTEF [Concomitant]
     Indication: PREMEDICATION
     Route: 042
  6. SOLUCORTEF [Concomitant]
     Indication: PREMEDICATION
     Route: 042
  7. BENADRYL [Concomitant]
     Indication: PREMEDICATION
     Route: 042

REACTIONS (5)
  - Ovarian cyst [Unknown]
  - Migraine [Unknown]
  - Infertility [Unknown]
  - Infusion related reaction [Unknown]
  - Dyspnoea [Unknown]
